FAERS Safety Report 20434541 (Version 1)
Quarter: 2022Q1

REPORT INFORMATION
  Report Type: Report from Study
  Country: EG (occurrence: EG)
  Receive Date: 20220206
  Receipt Date: 20220206
  Transmission Date: 20220424
  Serious: Yes (Other)
  Sender: FDA-Public Use
  Company Number: EG-NOVARTISPH-NVSC2022EG023050

PATIENT
  Age: 47 Year
  Sex: Male

DRUGS (5)
  1. ENTRESTO [Suspect]
     Active Substance: SACUBITRIL\VALSARTAN
     Indication: Cardiac failure
     Dosage: 200 MG, BID (97/103 MG)
     Route: 048
     Dates: start: 202001, end: 202002
  2. ENTRESTO [Suspect]
     Active Substance: SACUBITRIL\VALSARTAN
     Dosage: 100 MG, BID (49/51 MG)
     Route: 048
     Dates: start: 202002
  3. DIMETHICONE\MEBEVERINE [Suspect]
     Active Substance: DIMETHICONE\MEBEVERINE
     Indication: Colon injury
     Dosage: UNK (WHEN NEEDED , NO EXACT REGIMEN)
     Route: 048
  4. DIAVANCE [Concomitant]
     Indication: Diabetes mellitus
     Dosage: 1 DOSAGE FORM, QD
     Route: 048
     Dates: start: 2012
  5. EPLERENONE [Concomitant]
     Active Substance: EPLERENONE
     Indication: Hypertension
     Dosage: 1 DOSAGE FORM, QD
     Route: 048
     Dates: start: 202001

REACTIONS (32)
  - Suffocation feeling [Recovering/Resolving]
  - Dyspnoea [Recovering/Resolving]
  - Insomnia [Recovering/Resolving]
  - Fatigue [Recovered/Resolved]
  - Nasopharyngitis [Recovered/Resolved]
  - Chills [Recovered/Resolved]
  - Heart rate increased [Recovered/Resolved]
  - Fatigue [Recovered/Resolved]
  - Angina pectoris [Recovered/Resolved]
  - Heart rate increased [Recovered/Resolved]
  - Fluid retention [Not Recovered/Not Resolved]
  - Urinary retention [Not Recovered/Not Resolved]
  - Suffocation feeling [Recovered/Resolved]
  - Heart rate increased [Recovered/Resolved]
  - Angina pectoris [Recovered/Resolved]
  - Fatigue [Recovered/Resolved]
  - Swelling [Not Recovered/Not Resolved]
  - Product dose omission issue [Recovered/Resolved]
  - Fatigue [Recovered/Resolved]
  - Anxiety [Recovered/Resolved]
  - Pain in extremity [Recovered/Resolved]
  - Flatulence [Recovering/Resolving]
  - Abdominal distension [Recovering/Resolving]
  - Feeling abnormal [Recovering/Resolving]
  - Gastritis [Recovered/Resolved]
  - Oesophagitis [Recovered/Resolved]
  - Dyspnoea [Recovered/Resolved]
  - Hypersensitivity [Recovering/Resolving]
  - Pruritus [Recovering/Resolving]
  - Coagulopathy [Recovered/Resolved]
  - Anal fissure haemorrhage [Recovered/Resolved]
  - Ejection fraction decreased [Unknown]

NARRATIVE: CASE EVENT DATE: 20200101
